FAERS Safety Report 10217017 (Version 2)
Quarter: 2014Q2

REPORT INFORMATION
  Report Type: Spontaneous
  Country: US (occurrence: US)
  Receive Date: 20140604
  Receipt Date: 20140624
  Transmission Date: 20141212
  Serious: Yes (Other)
  Sender: FDA-Public Use
  Company Number: CHPA2014US007589

PATIENT
  Age: 79 Year
  Sex: Female

DRUGS (1)
  1. NODOZ [Suspect]
     Indication: HYPERVIGILANCE
     Dosage: 1 DF, PRN
     Route: 048

REACTIONS (3)
  - Colitis ulcerative [Unknown]
  - Tremor [Unknown]
  - Anaemia [Unknown]
